FAERS Safety Report 19647606 (Version 1)
Quarter: 2021Q3

REPORT INFORMATION
  Report Type: Spontaneous
  Country: CL (occurrence: CL)
  Receive Date: 20210802
  Receipt Date: 20210802
  Transmission Date: 20211014
  Serious: Yes (Other)
  Sender: FDA-Public Use
  Company Number: CL-PFIZER INC-202100941148

PATIENT
  Age: 16 Year
  Sex: Female

DRUGS (1)
  1. SAYANA PRESS [Suspect]
     Active Substance: MEDROXYPROGESTERONE\MEDROXYPROGESTERONE ACETATE
     Indication: CONTRACEPTION
     Dosage: UNK
     Dates: start: 20210112

REACTIONS (4)
  - Heavy menstrual bleeding [Unknown]
  - Vomiting [Unknown]
  - Vulvovaginal injury [Unknown]
  - Nausea [Unknown]

NARRATIVE: CASE EVENT DATE: 20210324
